FAERS Safety Report 8816602 (Version 2)
Quarter: 2013Q1

REPORT INFORMATION
  Report Type: Spontaneous
  Country: JP (occurrence: None)
  Receive Date: 20120928
  Receipt Date: 20121127
  Transmission Date: 20140127
  Serious: Yes (Life-Threatening, Hospitalization)
  Sender: FDA-Public Use
  Company Number: AE-SPE-2012-015

PATIENT
  Age: 12 Month
  Sex: Female

DRUGS (2)
  1. MEIACT MS [Suspect]
     Route: 048
     Dates: start: 20110510, end: 20110515
  2. CEFCAPENE PIVOXIL HYDROCHLORIDE HYDRATE [Concomitant]

REACTIONS (5)
  - Hypoglycaemia [None]
  - Convulsion [None]
  - Depressed level of consciousness [None]
  - Blood ketone body increased [None]
  - Carnitine decreased [None]
